FAERS Safety Report 8266022-8 (Version None)
Quarter: 2012Q1

REPORT INFORMATION
  Report Type: 
  Country: None (occurrence: None)
  Receive Date: 20120327
  Receipt Date: 20090728
  Transmission Date: 20120608
  Serious: Yes (Hospitalization)
  Sender: FDA-Public Use
  Company Number: PHEH2009US08338

PATIENT
  Age: 61 Year
  Sex: Female

DRUGS (10)
  1. LISINOPRIL [Concomitant]
  2. LYRICA [Concomitant]
  3. VICODIN [Concomitant]
  4. ZETIA [Concomitant]
  5. AMITRIPTYLINE HCL [Concomitant]
  6. MAGNESIUM (MAGNESIUM) [Concomitant]
  7. GLEEVEC [Suspect]
     Indication: CHRONIC MYELOID LEUKAEMIA
     Dosage: 800 MG, QD, ORAL
     Route: 048
     Dates: start: 20070701, end: 20090612
  8. DIAZEPAM [Concomitant]
  9. NEXIUM [Concomitant]
  10. GLUCOPHAGE [Concomitant]

REACTIONS (5)
  - HEADACHE [None]
  - PERIORBITAL OEDEMA [None]
  - PERICARDIAL EFFUSION [None]
  - DYSPNOEA [None]
  - OEDEMA PERIPHERAL [None]
